FAERS Safety Report 7514428-4 (Version None)
Quarter: 2011Q2

REPORT INFORMATION
  Report Type: 
  Country: None (occurrence: None)
  Receive Date: 20110601
  Receipt Date: 20110517
  Transmission Date: 20111010
  Serious: Yes (Hospitalization, Other)
  Sender: FDA-Public Use
  Company Number: US-JNJFOC-20080106893

PATIENT
  Sex: Male

DRUGS (9)
  1. PLAVIX [Concomitant]
     Route: 065
     Dates: start: 20080110, end: 20080110
  2. PROCRIT [Concomitant]
     Indication: MYOCARDIAL INFARCTION
     Route: 042
     Dates: start: 20080110, end: 20080110
  3. NIPRIDE [Concomitant]
     Route: 065
     Dates: start: 20080110, end: 20080110
  4. PLACEBO [Concomitant]
     Indication: MYOCARDIAL INFARCTION
     Route: 042
     Dates: start: 20080110, end: 20080110
  5. HEPARIN [Suspect]
     Indication: PRODUCT USED FOR UNKNOWN INDICATION
     Route: 041
     Dates: start: 20080111, end: 20080112
  6. REOPRO [Suspect]
     Indication: PERCUTANEOUS CORONARY INTERVENTION
     Route: 042
     Dates: start: 20080110, end: 20080110
  7. REOPRO [Suspect]
     Route: 042
     Dates: start: 20080110, end: 20080111
  8. PLAVIX [Concomitant]
     Route: 065
     Dates: start: 19980111
  9. NIPRIDE [Concomitant]
     Route: 065
     Dates: start: 20080111, end: 20080111

REACTIONS (2)
  - THROMBOSIS IN DEVICE [None]
  - THROMBOCYTOPENIA [None]
